FAERS Safety Report 11243396 (Version 1)
Quarter: 2015Q3

REPORT INFORMATION
  Report Type: Spontaneous
  Country: LB (occurrence: LB)
  Receive Date: 20150707
  Receipt Date: 20150707
  Transmission Date: 20151125
  Serious: Yes (Other)
  Sender: FDA-Public Use
  Company Number: LB-MYLANLABS-2015M1022196

PATIENT

DRUGS (5)
  1. TAMOXIFEN [Suspect]
     Active Substance: TAMOXIFEN
     Indication: BREAST CANCER MALE
     Dosage: UNK
     Route: 065
  2. VINORELBINE [Concomitant]
     Active Substance: VINORELBINE\VINORELBINE TARTRATE
     Indication: BREAST CANCER MALE
     Route: 065
  3. TAMOXIFEN [Suspect]
     Active Substance: TAMOXIFEN
     Dosage: UNK
     Route: 065
  4. EVEROLIMUS [Suspect]
     Active Substance: EVEROLIMUS
     Indication: BREAST CANCER MALE
     Route: 065
  5. CAPECITABINE. [Concomitant]
     Active Substance: CAPECITABINE
     Indication: BREAST CANCER MALE
     Route: 065

REACTIONS (3)
  - Drug resistance [Recovering/Resolving]
  - Breast cancer metastatic [Recovering/Resolving]
  - Mucosal inflammation [Unknown]
